FAERS Safety Report 9478506 (Version 2)
Quarter: 2013Q3

REPORT INFORMATION
  Report Type: Spontaneous
  Country: US (occurrence: None)
  Receive Date: 20130822
  Receipt Date: 20130827
  Transmission Date: 20140515
  Serious: Yes (Death)
  Sender: FDA-Public Use
  Company Number: TPA2013A07730

PATIENT
  Sex: Female

DRUGS (1)
  1. DEXILANT (DEXLANSOPRAZOLE) [Suspect]
     Route: 048

REACTIONS (1)
  - Road traffic accident [None]
